FAERS Safety Report 19078120 (Version 1)
Quarter: 2021Q1

REPORT INFORMATION
  Report Type: Spontaneous
  Country: US (occurrence: US)
  Receive Date: 20210331
  Receipt Date: 20210331
  Transmission Date: 20210420
  Serious: Yes (Hospitalization)
  Sender: FDA-Public Use
  Company Number: US-ORGANON-1701USA004826

PATIENT
  Age: 89 Year
  Sex: Female

DRUGS (6)
  1. IRON [Concomitant]
     Active Substance: IRON
     Dosage: UNK
  2. WATER. [Concomitant]
     Active Substance: WATER
     Dosage: UNK
  3. REMERON [Suspect]
     Active Substance: MIRTAZAPINE
     Indication: DEPRESSION
     Dosage: 15 MILLIGRAM (MG) IN THE MORNING AND 7.5 MG AT NIGHT
     Route: 048
     Dates: start: 201407, end: 202006
  4. REMERON [Suspect]
     Active Substance: MIRTAZAPINE
     Dosage: UNK
  5. LEXAPRO [Concomitant]
     Active Substance: ESCITALOPRAM OXALATE
     Dosage: HALF OF THE LOWEST DOSE
  6. POTASSIUM [Concomitant]
     Active Substance: POTASSIUM
     Dosage: UNK

REACTIONS (5)
  - Drug ineffective [Unknown]
  - Cholecystectomy [Recovered/Resolved]
  - Therapeutic response unexpected [Unknown]
  - Pre-existing condition improved [Unknown]
  - Amnesia [Not Recovered/Not Resolved]

NARRATIVE: CASE EVENT DATE: 2018
